FAERS Safety Report 4874797-0 (Version None)
Quarter: 2006Q1

REPORT INFORMATION
  Report Type: 
  Country: None (occurrence: None)
  Receive Date: 20060104
  Receipt Date: 20051219
  Transmission Date: 20060701
  Serious: Yes (Hospitalization)
  Sender: FDA-Public Use
  Company Number: 2005155783

PATIENT
  Age: 55 Year
  Sex: Male

DRUGS (3)
  1. FRAGMIN [Suspect]
     Indication: ILL-DEFINED DISORDER
     Dosage: 10000 I.U. (5000 I.U., 2 IN 1D) SUBCUTANEOUS
     Route: 058
     Dates: start: 20051108
  2. ASPIRIN [Suspect]
     Indication: ILL-DEFINED DISORDER
     Dates: start: 20051108
  3. CLOPIDOGREL BISULFATE [Suspect]
     Indication: ILL-DEFINED DISORDER
     Dates: start: 20051108

REACTIONS (1)
  - HAEMOPTYSIS [None]
